FAERS Safety Report 14716428 (Version 3)
Quarter: 2018Q2

REPORT INFORMATION
  Report Type: Spontaneous
  Country: ZA (occurrence: ZA)
  Receive Date: 20180404
  Receipt Date: 20180618
  Transmission Date: 20180711
  Serious: Yes (Hospitalization)
  Sender: FDA-Public Use
  Company Number: PHHY2018ZA056514

PATIENT
  Sex: Male

DRUGS (1)
  1. TEGRETOL [Suspect]
     Active Substance: CARBAMAZEPINE
     Indication: EPILEPSY
     Dosage: 400 MG, UNK
     Route: 048
     Dates: start: 201711

REACTIONS (4)
  - Blood glucose abnormal [Recovering/Resolving]
  - Cardiac disorder [Recovering/Resolving]
  - Kidney infection [Recovering/Resolving]
  - Pneumonia [Recovering/Resolving]
